FAERS Safety Report 5248100-0 (Version None)
Quarter: 2007Q1

REPORT INFORMATION
  Report Type: 
  Country: None (occurrence: None)
  Receive Date: 20070227
  Receipt Date: 20070223
  Transmission Date: 20070707
  Serious: Yes (Other)
  Sender: FDA-Public Use
  Company Number: US-GLAXOSMITHKLINE-A0641037A

PATIENT
  Sex: Male

DRUGS (2)
  1. ADVAIR DISKUS 100/50 [Suspect]
     Indication: DRUG USE FOR UNKNOWN INDICATION
     Route: 055
  2. UNSPECIFIED INHALER [Concomitant]

REACTIONS (4)
  - DEVICE INEFFECTIVE [None]
  - DRUG INEFFECTIVE [None]
  - INHALATION THERAPY [None]
  - PHARMACEUTICAL PRODUCT COMPLAINT [None]
